FAERS Safety Report 5563850-4 (Version None)
Quarter: 2007Q4

REPORT INFORMATION
  Report Type: 
  Country: None (occurrence: None)
  Receive Date: 20071217
  Receipt Date: 20071005
  Transmission Date: 20080405
  Serious: No
  Sender: FDA-Public Use
  Company Number: US-ASTRAZENECA-2007UW23255

PATIENT
  Age: 65 Year
  Sex: Female
  Weight: 71.7 kg

DRUGS (10)
  1. CRESTOR [Suspect]
     Indication: HYPERCHOLESTEROLAEMIA
     Route: 048
     Dates: start: 20070930
  2. REMICADE [Concomitant]
     Route: 030
  3. METHOTREXATE [Concomitant]
  4. METOPROLOL [Concomitant]
     Route: 048
  5. PRAVASTATIN [Concomitant]
     Route: 048
  6. LISINOPRIL [Concomitant]
     Route: 048
  7. FOLIC ACID [Concomitant]
     Route: 048
  8. CALCIUM PLUS VITAMINS [Concomitant]
     Route: 048
  9. ASPIRIN [Concomitant]
     Route: 048
  10. OMEGA FISH OIL [Concomitant]
     Route: 048

REACTIONS (3)
  - BITE [None]
  - RASH PRURITIC [None]
  - URTICARIA [None]
